FAERS Safety Report 5366642-4 (Version None)
Quarter: 2007Q2

REPORT INFORMATION
  Report Type: 
  Country: None (occurrence: None)
  Receive Date: 20070622
  Receipt Date: 20070615
  Transmission Date: 20071010
  Serious: Yes (Other)
  Sender: FDA-Public Use
  Company Number: US-PFIZER INC-2007049670

PATIENT
  Sex: Female
  Weight: 66.818 kg

DRUGS (1)
  1. DETROL LA [Suspect]
     Indication: INCONTINENCE
     Route: 048

REACTIONS (2)
  - CROHN'S DISEASE [None]
  - DEMENTIA ALZHEIMER'S TYPE [None]
